FAERS Safety Report 6879115-4 (Version None)
Quarter: 2010Q3

REPORT INFORMATION
  Report Type: 
  Country: None (occurrence: None)
  Receive Date: 20100728
  Receipt Date: 20100610
  Transmission Date: 20110219
  Serious: No
  Sender: FDA-Public Use
  Company Number: US-BAYER-201025976NA

PATIENT
  Sex: Female
  Weight: 82 kg

DRUGS (3)
  1. ULTRAVIST (PHARMACY BULK) [Suspect]
     Indication: COMPUTERISED TOMOGRAM ABDOMEN
     Dosage: TOTAL DAILY DOSE: 125 ML  UNIT DOSE: 500 ML
     Route: 042
  2. BENADRYL [Concomitant]
     Dosage: AS USED: 50 MG
     Route: 048
  3. READI-CAT [Concomitant]
     Indication: COMPUTERISED TOMOGRAM ABDOMEN
     Dosage: 2
     Route: 048

REACTIONS (2)
  - CHEST DISCOMFORT [None]
  - PRURITUS [None]
